FAERS Safety Report 8483548-2 (Version None)
Quarter: 2012Q3

REPORT INFORMATION
  Report Type: 
  Country: None (occurrence: None)
  Receive Date: 20120702
  Receipt Date: 20120625
  Transmission Date: 20120928
  Serious: Yes (Other)
  Sender: FDA-Public Use
  Company Number: JP-MERCK-1206USA04669

PATIENT
  Age: 81 Year
  Sex: Female

DRUGS (7)
  1. ZETIA [Suspect]
     Indication: LIPIDS ABNORMAL
     Route: 048
     Dates: start: 20120616, end: 20120620
  2. ATORVASTATIN [Concomitant]
     Route: 048
  3. MECOBALAMIN [Concomitant]
     Route: 065
  4. OPAPROSMON [Concomitant]
     Route: 048
  5. OMEPRAZOLE [Concomitant]
     Route: 048
  6. MICAMLO [Concomitant]
     Route: 048
  7. METFORMIN HCL [Concomitant]
     Route: 048

REACTIONS (1)
  - FLUSHING [None]
